FAERS Safety Report 12883813 (Version 2)
Quarter: 2020Q4

REPORT INFORMATION
  Report Type: Spontaneous
  Country: PT (occurrence: PT)
  Receive Date: 20161026
  Receipt Date: 20201103
  Transmission Date: 20210113
  Serious: Yes (Other)
  Sender: FDA-Public Use
  Company Number: PT-BAXTER-2016BAX053816

PATIENT
  Age: 37 Year
  Sex: Female

DRUGS (15)
  1. VINCRISTINE [Suspect]
     Active Substance: VINCRISTINE
     Indication: ACUTE LEUKAEMIA
     Dosage: 1.5 MG/M2, DAILY, ON R1 DAY 1, 6
     Route: 048
     Dates: start: 201504
  2. MERCAPTOPURINE. [Suspect]
     Active Substance: MERCAPTOPURINE
     Indication: ACUTE LEUKAEMIA
     Dosage: 100MG/M2, DAILY, DAY 1 TO 5
     Route: 048
     Dates: start: 201504, end: 201508
  3. METHOTREXATE SODIUM. [Suspect]
     Active Substance: METHOTREXATE SODIUM
     Indication: ACUTE LEUKAEMIA
     Dosage: 1 G/M2/36HOURS ON R1, DAY 1 AND R2, DAY 1
     Route: 042
     Dates: start: 201504, end: 201508
  4. ETOPOSIDE. [Suspect]
     Active Substance: ETOPOSIDE
     Indication: ACUTE LEUKAEMIA
     Dosage: 150 MG/M2, DAILY ON R3 DAY 3 TO 5
     Route: 042
     Dates: start: 201504, end: 201508
  5. TIOGUANINE [Suspect]
     Active Substance: THIOGUANINE ANHYDROUS
     Indication: ACUTE LEUKAEMIA
     Dosage: 100 MG/M2, DAILY R2, DAY 1 TO 5
     Route: 048
     Dates: start: 201504, end: 201508
  6. CYTARABINE. [Suspect]
     Active Substance: CYTARABINE
     Indication: ACUTE LEUKAEMIA
     Dosage: 4000 MG/M2, DAILY ON R1 DAY 5 AND R3 DAY 1, 2, POWDER FOR SOVENT FOR SOLUTION FOR INJECTION
     Route: 042
     Dates: start: 201504, end: 201508
  7. CYTARABINE. [Suspect]
     Active Substance: CYTARABINE
     Dosage: AT AGE DEPENDENT (R1, DAY 1; R2, DAY 1; R3, DAY 5), POWDER FOR SOLVENT FOR SOLUTION FOR INJECTION
     Route: 037
     Dates: start: 201504, end: 201508
  8. DAUNORUBICIN [Suspect]
     Active Substance: DAUNORUBICIN
     Indication: ACUTE LEUKAEMIA
     Dosage: 50 MG/M2, DAILY ON R2 DAY 5
     Route: 042
     Dates: start: 201504, end: 201508
  9. HOLOXAN 2000 MG PO PARA SOLUCAO INJECTAVEL [Suspect]
     Active Substance: IFOSFAMIDE
     Indication: ACUTE LEUKAEMIA
     Dosage: 400 MG/M2, DAILY R2 DAY 1 TO 5
     Route: 042
     Dates: start: 201504, end: 201508
  10. L-ASPARAGINASE [Suspect]
     Active Substance: ASPARAGINASE
     Indication: ACUTE LEUKAEMIA
     Dosage: 25000 UI/M2, DAILY, R1, DAY 6; R2, DAY 6; R3, DAY 6
     Route: 030
     Dates: start: 201504, end: 201508
  11. DEXAMETHASONE. [Suspect]
     Active Substance: DEXAMETHASONE
     Indication: ACUTE LEUKAEMIA
     Dosage: 20 MG/M2, DAILY, R1, DAY 1 TO 5; R2, DAY 1 TO 5; R3, DAY 1 TO 5
     Route: 048
     Dates: start: 201504, end: 201508
  12. PREDNISOLONE. [Suspect]
     Active Substance: PREDNISOLONE
     Indication: ACUTE LEUKAEMIA
     Dosage: AT AGE DEPENDENT (R1, DAY 1; R2, DAY 1; R3, DAY 5)
     Route: 039
     Dates: start: 201504, end: 201508
  13. METHOTREXATE SODIUM. [Suspect]
     Active Substance: METHOTREXATE SODIUM
     Indication: ACUTE LEUKAEMIA
     Dosage: DOSE DEPENDENT (R1, DAY 1; R2, DAY 1; R3, DAY 5)
     Route: 037
     Dates: start: 201504, end: 201508
  14. VINCRISTINE [Suspect]
     Active Substance: VINCRISTINE
     Dosage: 3 MG/M2, DAILY ON R2
     Route: 042
     Dates: start: 201504, end: 201508
  15. METHOTREXATE SODIUM. [Suspect]
     Active Substance: METHOTREXATE SODIUM
     Dosage: 5 G/M2/24HOURS ON R1, DAY 1 AND R2, DAY 1
     Route: 042
     Dates: start: 201504, end: 201508

REACTIONS (7)
  - Hepatotoxicity [Unknown]
  - Mucosal inflammation [Unknown]
  - Febrile neutropenia [Unknown]
  - Aplasia [Unknown]
  - Sepsis [Unknown]
  - Product use issue [Unknown]
  - Neoplasm recurrence [Unknown]

NARRATIVE: CASE EVENT DATE: 201607
